FAERS Safety Report 17249238 (Version 2)
Quarter: 2020Q1

REPORT INFORMATION
  Report Type: Spontaneous
  Country: SE (occurrence: SE)
  Receive Date: 20200108
  Receipt Date: 20200117
  Transmission Date: 20200409
  Serious: Yes (Hospitalization)
  Sender: FDA-Public Use
  Company Number: SE-PFIZER INC-2020006249

PATIENT
  Sex: Male

DRUGS (5)
  1. NALTREXONE [Suspect]
     Active Substance: NALTREXONE
     Dosage: UNK
     Route: 048
     Dates: start: 20190809, end: 20190809
  2. LYRICA [Suspect]
     Active Substance: PREGABALIN
     Dosage: 4.5 G, UNK
     Route: 048
     Dates: start: 20190809, end: 20190809
  3. THERALEN [Suspect]
     Active Substance: TRIMEPRAZINE
     Dosage: UNK
     Route: 048
     Dates: start: 20190809, end: 20190809
  4. CITODON [CODEINE PHOSPHATE HEMIHYDRATE;PARACETAMOL] [Suspect]
     Active Substance: ACETAMINOPHEN\CODEINE PHOSPHATE
     Dosage: UNK (PROBABLY NOT THAT MANY)
     Route: 048
     Dates: start: 20190809, end: 20190809
  5. PROPAVAN [Suspect]
     Active Substance: PROPIOMAZINE
     Dosage: UNK
     Route: 048
     Dates: start: 20190809, end: 20190809

REACTIONS (2)
  - Intentional self-injury [Unknown]
  - Intentional overdose [Unknown]

NARRATIVE: CASE EVENT DATE: 20190809
